FAERS Safety Report 5520635-2 (Version None)
Quarter: 2007Q4

REPORT INFORMATION
  Report Type: 
  Country: None (occurrence: None)
  Receive Date: 20071119
  Receipt Date: 20071106
  Transmission Date: 20080405
  Serious: Yes (Hospitalization)
  Sender: FDA-Public Use
  Company Number: FR-PFIZER INC-2007093197

PATIENT
  Sex: Female

DRUGS (12)
  1. AMLOR [Suspect]
     Dosage: TEXT:1 DF DAILY
     Route: 048
  2. NEULEPTIL [Suspect]
     Indication: AGITATION
     Route: 048
     Dates: start: 20070610, end: 20070626
  3. HEMIGOXINE NATIVELLE [Suspect]
     Route: 048
  4. PREVISCAN [Suspect]
     Dosage: TEXT:1 DF DAILY
     Route: 048
     Dates: start: 20070623, end: 20070626
  5. EUPRESSYL [Suspect]
  6. TARDYFERON [Suspect]
     Indication: IRON DEFICIENCY ANAEMIA
     Dosage: TEXT:1 DF BID
     Route: 048
  7. HYPERIUM [Concomitant]
  8. NOVONORM [Concomitant]
  9. LEVOTHYROXINE SODIUM [Concomitant]
  10. ATARAX [Concomitant]
  11. MOVICOL [Concomitant]
  12. IMOVANE [Concomitant]

REACTIONS (1)
  - RHABDOMYOLYSIS [None]
